FAERS Safety Report 4424828-7 (Version None)
Quarter: 2004Q3

REPORT INFORMATION
  Report Type: 
  Country: None (occurrence: None)
  Receive Date: 20040809
  Receipt Date: 20040728
  Transmission Date: 20050211
  Serious: Yes (Hospitalization)
  Sender: FDA-Public Use
  Company Number: 01P-056-0109440-00

PATIENT
  Age: 38 Year
  Sex: Male

DRUGS (8)
  1. DEPAKENE [Suspect]
     Indication: PARTIAL SEIZURES
     Dosage: 500 MG, 1 IN 1 D, PER ORAL
     Route: 048
     Dates: start: 19981201, end: 19990201
  2. DEPAKENE [Suspect]
     Indication: PARTIAL SEIZURES
     Dosage: 500 MG, 1 IN 1 D, PER ORAL
     Route: 048
     Dates: start: 19940101, end: 19990701
  3. DEPAKENE [Suspect]
     Indication: PARTIAL SEIZURES
     Dosage: 500 MG, 1 IN 1 D, PER ORAL
     Route: 048
     Dates: start: 19990201
  4. TOPIRMATE [Suspect]
     Indication: PARTIAL SEIZURES
     Dosage: SEE IMAGE
     Dates: start: 19981201, end: 19990201
  5. TOPIRMATE [Suspect]
     Indication: PARTIAL SEIZURES
     Dosage: SEE IMAGE
     Dates: start: 19990201
  6. PRIMIDONE [Concomitant]
  7. CARBAMAZEPINE [Concomitant]
  8. FLUOXETINE [Concomitant]

REACTIONS (9)
  - ANTEROGRADE AMNESIA [None]
  - APHASIA [None]
  - COGNITIVE DISORDER [None]
  - DRUG INTERACTION [None]
  - DYSPRAXIA [None]
  - ELECTROENCEPHALOGRAM ABNORMAL [None]
  - ENCEPHALOPATHY [None]
  - HYPERAMMONAEMIA [None]
  - SOMNOLENCE [None]
